FAERS Safety Report 11865395 (Version 2)
Quarter: 2016Q3

REPORT INFORMATION
  Report Type: Report from Study
  Country: AU (occurrence: AU)
  Receive Date: 20151223
  Receipt Date: 20160809
  Transmission Date: 20161109
  Serious: Yes (Death, Hospitalization, Other)
  Sender: FDA-Public Use
  Company Number: AU-REGENERON PHARMACEUTICALS, INC.-2015-11396

PATIENT

DRUGS (1)
  1. EYLEA [Suspect]
     Active Substance: AFLIBERCEPT
     Indication: NEOVASCULAR AGE-RELATED MACULAR DEGENERATION
     Dosage: 2 MG, Q1MON
     Route: 031
     Dates: start: 201412

REACTIONS (4)
  - Non-Hodgkin^s lymphoma [Fatal]
  - Dyspnoea [Unknown]
  - Pyrexia [Fatal]
  - Aortic occlusion [Recovering/Resolving]

NARRATIVE: CASE EVENT DATE: 20151209
